FAERS Safety Report 9270164 (Version 2)
Quarter: 2013Q2

REPORT INFORMATION
  Report Type: Spontaneous
  Country: US (occurrence: US)
  Receive Date: 20130503
  Receipt Date: 20130522
  Transmission Date: 20140414
  Serious: Yes (Death)
  Sender: FDA-Public Use
  Company Number: US-GLAXOSMITHKLINE-A1022248A

PATIENT
  Age: 75 Year
  Sex: Male

DRUGS (9)
  1. VOTRIENT [Suspect]
     Indication: SOFT TISSUE CANCER
     Dosage: 800MG PER DAY
     Route: 048
     Dates: start: 20121231
  2. BENZONATATE [Concomitant]
  3. ALPHA-LIPOIC ACID [Concomitant]
  4. CRESTOR [Concomitant]
  5. METOPROLOL [Concomitant]
  6. LEVOTHYROXINE [Concomitant]
  7. TRILIPIX [Concomitant]
  8. B12 [Concomitant]
  9. B6 [Concomitant]

REACTIONS (2)
  - Sarcoma metastatic [Fatal]
  - Disease progression [Fatal]
